APPROVED DRUG PRODUCT: CALCIUM GLUCONATE
Active Ingredient: CALCIUM GLUCONATE
Strength: 1GM/10ML (100MG/ML)
Dosage Form/Route: SOLUTION;INTRAVENOUS
Application: A213071 | Product #001 | TE Code: AP
Applicant: NIVAGEN PHARMACEUTICALS INC
Approved: Oct 14, 2022 | RLD: No | RS: No | Type: RX